FAERS Safety Report 23719172 (Version 1)
Quarter: 2024Q2

REPORT INFORMATION
  Report Type: Spontaneous
  Country: IN (occurrence: IN)
  Receive Date: 20240408
  Receipt Date: 20240408
  Transmission Date: 20240716
  Serious: Yes (Death, Hospitalization, Other)
  Sender: FDA-Public Use
  Company Number: IN-INSUD PHARMA-2403IN02882

PATIENT

DRUGS (5)
  1. KETOCONAZOLE [Interacting]
     Active Substance: KETOCONAZOLE
     Indication: Cortisol increased
     Dosage: TITRATED TO 1200 MG/DAY, LAST DOSE WAS NIGHT BEFORE SURGERY
     Route: 065
  2. ISOFLURANE [Interacting]
     Active Substance: ISOFLURANE
     Indication: General anaesthesia
     Dosage: UNK
  3. POTASSIUM [Concomitant]
     Active Substance: POTASSIUM
     Indication: Hypokalaemia
     Route: 048
  4. SPIRONOLACTONE [Concomitant]
     Active Substance: SPIRONOLACTONE
     Indication: Hypertension
     Dosage: TITRATED TO 200 MG/DAY
  5. HYDROCORTISONE [Concomitant]
     Active Substance: HYDROCORTISONE
     Indication: Pulmonary resection
     Dosage: 50 MILLIGRAM, QD

REACTIONS (7)
  - Drug-induced liver injury [Fatal]
  - Acute hepatic failure [Fatal]
  - Drug interaction [Unknown]
  - Abdominal pain upper [Unknown]
  - Abdominal pain upper [Unknown]
  - Haemorrhagic diathesis [Unknown]
  - Sensory disturbance [Unknown]
